FAERS Safety Report 17293350 (Version 2)
Quarter: 2020Q1

REPORT INFORMATION
  Report Type: Spontaneous
  Country: US (occurrence: US)
  Receive Date: 20200121
  Receipt Date: 20200317
  Transmission Date: 20200409
  Serious: Yes (Other)
  Sender: FDA-Public Use
  Company Number: US-DRREDDYS-USA/USA/20/0118626

PATIENT
  Age: 33 Year
  Sex: Male

DRUGS (3)
  1. METHOTREXATE. [Suspect]
     Active Substance: METHOTREXATE
     Indication: SARCOIDOSIS
  2. DEXAMETHASONE SODIUM PHOSPHATE INJECTION, 4 MG/ML [Suspect]
     Active Substance: DEXAMETHASONE SODIUM PHOSPHATE
     Indication: SPINAL CORD COMPRESSION
  3. PREDNISONE. [Suspect]
     Active Substance: PREDNISONE
     Indication: SARCOIDOSIS

REACTIONS (3)
  - Microcytic anaemia [Unknown]
  - Mycobacterium avium complex infection [Recovering/Resolving]
  - Tuberculosis of central nervous system [Recovering/Resolving]
